FAERS Safety Report 9016613 (Version 3)
Quarter: 2013Q4

REPORT INFORMATION
  Report Type: Report from Study
  Country: IT (occurrence: IT)
  Receive Date: 20130117
  Receipt Date: 20131216
  Transmission Date: 20140711
  Serious: Yes (Other)
  Sender: FDA-Public Use
  Company Number: IT-BIOGENIDEC-2013BI002712

PATIENT
  Age: 33 Year
  Sex: Female

DRUGS (3)
  1. TYSABRI [Suspect]
     Indication: MULTIPLE SCLEROSIS
     Route: 042
     Dates: start: 20120822, end: 20121024
  2. RITROVIL [Concomitant]
     Route: 048
  3. LAMICTAL [Concomitant]
     Indication: EPILEPSY
     Route: 048

REACTIONS (1)
  - Oligodendroglioma [Not Recovered/Not Resolved]
